FAERS Safety Report 5109763-3 (Version None)
Quarter: 2006Q3

REPORT INFORMATION
  Report Type: 
  Country: None (occurrence: None)
  Receive Date: 20060914
  Receipt Date: 20060901
  Transmission Date: 20061208
  Serious: Yes (Hospitalization, Other)
  Sender: FDA-Public Use
  Company Number: VNL_0210_2006

PATIENT
  Age: 62 Year
  Sex: Female

DRUGS (2)
  1. APO-GO [Suspect]
     Indication: PARKINSON'S DISEASE
     Dosage: 9 MG/DAY QDAY SC
     Route: 058
     Dates: start: 20060208, end: 20060501
  2. ISCOVER [Concomitant]

REACTIONS (3)
  - INJECTION SITE HAEMATOMA [None]
  - INJECTION SITE NODULE [None]
  - MUSCULAR WEAKNESS [None]
